FAERS Safety Report 5905307-4 (Version None)
Quarter: 2008Q4

REPORT INFORMATION
  Report Type: 
  Country: None (occurrence: None)
  Receive Date: 20081001
  Receipt Date: 20080926
  Transmission Date: 20090506
  Serious: Yes (Hospitalization, Other)
  Sender: FDA-Public Use
  Company Number: US-B.I. PHARMACEUTICALS,INC./RIDGEFIELD-2008-BP-15030BP

PATIENT
  Age: 62 Year
  Sex: Female

DRUGS (2)
  1. SPIRIVA [Suspect]
     Indication: CHRONIC OBSTRUCTIVE PULMONARY DISEASE
     Dosage: 18MCG
     Route: 055
     Dates: start: 20060101, end: 20080924
  2. AZMACORT [Concomitant]
     Indication: DYSPNOEA

REACTIONS (4)
  - CEREBROVASCULAR ACCIDENT [None]
  - MUSCLE SPASMS [None]
  - MYOCARDIAL INFARCTION [None]
  - SENSATION OF BLOOD FLOW [None]
